FAERS Safety Report 16246964 (Version 1)
Quarter: 2019Q2

REPORT INFORMATION
  Report Type: Spontaneous
  Country: US (occurrence: US)
  Receive Date: 20190427
  Receipt Date: 20190427
  Transmission Date: 20190711
  Serious: No
  Sender: FDA-Public Use
  Company Number: US-BIOGEN-2019BI00729619

PATIENT
  Sex: Female

DRUGS (1)
  1. AVONEX [Suspect]
     Active Substance: INTERFERON BETA-1A
     Indication: MULTIPLE SCLEROSIS
     Dosage: WILL TAKE LAST INJECTION 22APR2019
     Route: 030

REACTIONS (3)
  - Confusional state [Unknown]
  - Nervousness [Not Recovered/Not Resolved]
  - Ankle fracture [Unknown]
